FAERS Safety Report 16823337 (Version 1)
Quarter: 2019Q3

REPORT INFORMATION
  Report Type: Spontaneous
  Country: FR (occurrence: FR)
  Receive Date: 20190918
  Receipt Date: 20190918
  Transmission Date: 20191005
  Serious: Yes (Death, Hospitalization, Other)
  Sender: FDA-Public Use
  Company Number: FR-SA-2019SA002017

PATIENT
  Age: 83 Year
  Sex: Male
  Weight: 91 kg

DRUGS (9)
  1. JOSIR LP 0,4 MG [Suspect]
     Active Substance: TAMSULOSIN
     Indication: BENIGN PROSTATIC HYPERPLASIA
     Dosage: 0.4 MG, ONCE DAILY
     Route: 048
     Dates: end: 20180909
  2. ALLOPURINOL. [Suspect]
     Active Substance: ALLOPURINOL
     Indication: GOUT
     Dosage: UNK
     Route: 048
  3. XATRAL [Suspect]
     Active Substance: ALFUZOSIN
     Indication: BENIGN PROSTATIC HYPERPLASIA
     Dosage: UNK
     Route: 048
     Dates: start: 20180919
  4. CABOMETYX [Suspect]
     Active Substance: CABOZANTINIB S-MALATE
     Indication: RENAL CANCER METASTATIC
     Dosage: 60 MG, QD
     Route: 048
     Dates: start: 2017, end: 20181003
  5. DESLORATADINE. [Suspect]
     Active Substance: DESLORATADINE
     Indication: PRURITUS
     Dosage: 5 MG, QD
     Route: 048
     Dates: start: 20180905, end: 20181007
  6. SERENOA REPENS [Suspect]
     Active Substance: SERENOA REPENS WHOLE
     Indication: BENIGN PROSTATIC HYPERPLASIA
     Dosage: UNK
     Route: 048
  7. MAGNESIUM GLUTAMATE W/NICOTINAMIDE//03098401/ [Suspect]
     Active Substance: MAGNESIUM\NIACINAMIDE\RIBOFLAVIN\THIAMINE
     Indication: BENIGN PROSTATIC HYPERPLASIA
     Dosage: UNK
     Route: 048
  8. WARFARIN SODIUM. [Suspect]
     Active Substance: WARFARIN SODIUM
     Indication: ATRIAL FIBRILLATION
     Dosage: UNK
     Route: 048
     Dates: start: 20180919
  9. FLUINDIONE [Suspect]
     Active Substance: FLUINDIONE
     Indication: ATRIAL FIBRILLATION
     Dosage: 20 MG, QD
     Route: 048
     Dates: end: 20180919

REACTIONS (7)
  - Renal cancer metastatic [Fatal]
  - Confusional state [Recovered/Resolved]
  - Hallucination [Recovered/Resolved]
  - Pruritus [Not Recovered/Not Resolved]
  - Purpura [Not Recovered/Not Resolved]
  - Eosinophilia [Not Recovered/Not Resolved]
  - Oedema [Not Recovered/Not Resolved]

NARRATIVE: CASE EVENT DATE: 20180803
